FAERS Safety Report 6925335-X (Version None)
Quarter: 2010Q3

REPORT INFORMATION
  Report Type: 
  Country: None (occurrence: None)
  Receive Date: 20100816
  Receipt Date: 20100804
  Transmission Date: 20110219
  Serious: Yes (Other)
  Sender: FDA-Public Use
  Company Number: BE-SANOFI-AVENTIS-2010SA026319

PATIENT
  Age: 59 Year
  Sex: Male
  Weight: 91 kg

DRUGS (7)
  1. OXALIPLATIN [Suspect]
     Indication: COLON CANCER
     Dates: start: 20100225, end: 20100225
  2. OXALIPLATIN [Suspect]
     Dates: start: 20100225, end: 20100225
  3. OXALIPLATIN [Suspect]
  4. XELODA [Concomitant]
     Indication: COLON CANCER
     Route: 048
     Dates: start: 20100225
  5. AVASTIN [Concomitant]
     Indication: COLON CANCER
     Route: 042
     Dates: start: 20100225, end: 20100225
  6. AVASTIN [Concomitant]
     Route: 042
  7. ZESTRIL [Concomitant]
     Indication: HYPERTENSION
     Route: 048
     Dates: start: 20100401

REACTIONS (1)
  - HAEMOLYSIS [None]
